FAERS Safety Report 6566329-6 (Version None)
Quarter: 2010Q1

REPORT INFORMATION
  Report Type: 
  Country: None (occurrence: None)
  Receive Date: 20100127
  Receipt Date: 20090608
  Transmission Date: 20100710
  Serious: Yes (Other)
  Sender: FDA-Public Use
  Company Number: WWISSUE-303

PATIENT

DRUGS (1)
  1. NAPROXEN [Suspect]

REACTIONS (1)
  - DRUG INEFFECTIVE [None]
